FAERS Safety Report 9674283 (Version 1)
Quarter: 2013Q4

REPORT INFORMATION
  Report Type: Spontaneous
  Country: TR (occurrence: TR)
  Receive Date: 20131107
  Receipt Date: 20131107
  Transmission Date: 20140711
  Serious: Yes (Life-Threatening, Hospitalization, Other)
  Sender: FDA-Public Use
  Company Number: TR-009507513-1311TUR000695

PATIENT
  Age: 39 Year
  Sex: Female

DRUGS (3)
  1. BETAMETHASONE DIPROPIONATE [Suspect]
     Dosage: 12 MG, QD
     Route: 030
  2. NIFEDIPINE [Suspect]
     Indication: PRETERM PREMATURE RUPTURE OF MEMBRANES
     Dosage: 40 MG, EVERY 6 HOURS
     Route: 048
  3. AMOXICILLIN [Suspect]
     Dosage: 1 G, QID
     Route: 042

REACTIONS (3)
  - Pulmonary oedema [Recovered/Resolved]
  - Endotracheal intubation [Unknown]
  - Exposure during pregnancy [Recovered/Resolved]
